FAERS Safety Report 20900354 (Version 1)
Quarter: 2022Q2

REPORT INFORMATION
  Report Type: Spontaneous
  Country: US (occurrence: None)
  Receive Date: 20220531
  Receipt Date: 20220531
  Transmission Date: 20220721
  Serious: Yes (Other)
  Sender: FDA-Public Use
  Company Number: None

PATIENT
  Age: 76 Year
  Sex: Female
  Weight: 54.9 kg

DRUGS (2)
  1. MELOXICAM [Suspect]
     Active Substance: MELOXICAM
     Indication: Back disorder
     Dosage: OTHER QUANTITY : 1 CAPSULE(S);?FREQUENCY : DAILY;?
     Route: 048
     Dates: start: 20220407, end: 20220427
  2. MELOXICAM [Suspect]
     Active Substance: MELOXICAM
     Indication: Spinal disorder

REACTIONS (6)
  - Joint swelling [None]
  - Peripheral swelling [None]
  - Swelling [None]
  - Peripheral swelling [None]
  - Joint swelling [None]
  - Neuralgia [None]

NARRATIVE: CASE EVENT DATE: 20220410
